FAERS Safety Report 21398369 (Version 3)
Quarter: 2022Q4

REPORT INFORMATION
  Report Type: Report from Study
  Country: CO (occurrence: CO)
  Receive Date: 20220930
  Receipt Date: 20221208
  Transmission Date: 20230113
  Serious: Yes (Death, Life-Threatening, Other)
  Sender: FDA-Public Use
  Company Number: CO-BRISTOL-MYERS SQUIBB COMPANY-2022-113309

PATIENT
  Age: 37 Year
  Sex: Female
  Weight: 66 kg

DRUGS (5)
  1. PLACEBO [Suspect]
     Active Substance: UNSPECIFIED INGREDIENT
     Indication: Breast cancer
     Dosage: MOST RECENT DOSE WAS ON 29-JUN-2022
     Route: 042
     Dates: start: 20210629, end: 20220629
  2. PACLITAXEL [Suspect]
     Active Substance: PACLITAXEL
     Indication: Breast cancer
     Dosage: MOST RECENT DOSE OF 133.6 MG ON 23-SEP-2021
     Route: 042
     Dates: start: 20210629, end: 20210923
  3. DOXORUBICIN HYDROCHLORIDE [Suspect]
     Active Substance: DOXORUBICIN HYDROCHLORIDE
     Indication: Breast cancer
     Dosage: MOST RECENT DOSE ON 09-NOV-2021
     Route: 042
     Dates: start: 20210930, end: 20211109
  4. CYCLOPHOSPHAMIDE [Suspect]
     Active Substance: CYCLOPHOSPHAMIDE
     Indication: Breast cancer
     Dosage: MOST RECENT DOSE ON 09-NOV-2021
     Route: 042
     Dates: start: 20210930, end: 20211109
  5. EXEMESTANE [Suspect]
     Active Substance: EXEMESTANE
     Indication: Breast cancer
     Dosage: MOST RECENT DOSE ON 31-MAY-2022
     Route: 048
     Dates: start: 20220208, end: 20220531

REACTIONS (1)
  - Malignant neoplasm progression [Fatal]

NARRATIVE: CASE EVENT DATE: 20220915
